FAERS Safety Report 4871945-3 (Version None)
Quarter: 2005Q4

REPORT INFORMATION
  Report Type: 
  Country: None (occurrence: None)
  Receive Date: 20051230
  Receipt Date: 20051214
  Transmission Date: 20060501
  Serious: Yes (Hospitalization, Other)
  Sender: FDA-Public Use
  Company Number: ES200512002475

PATIENT
  Age: 64 Year
  Sex: Male

DRUGS (7)
  1. FLUOXETINE HCL [Suspect]
     Indication: DEPRESSION
     Dosage: 20 MG, DAILY (1/D),
  2. RISPERIDONE [Concomitant]
  3. DIPYRONE TAB [Concomitant]
  4. DIAZEPAM [Concomitant]
  5. OMEPRAZOLE [Concomitant]
  6. FENTANYL [Concomitant]
  7. HEPARIN SODIUM [Concomitant]

REACTIONS (3)
  - DRUG INTERACTION [None]
  - HEPATITIS CHOLESTATIC [None]
  - HEPATOTOXICITY [None]
